FAERS Safety Report 5001608-5 (Version None)
Quarter: 2006Q2

REPORT INFORMATION
  Report Type: 
  Country: None (occurrence: None)
  Receive Date: 20060511
  Receipt Date: 20060511
  Transmission Date: 20061013
  Serious: Yes (Hospitalization)
  Sender: FDA-Public Use
  Company Number: None

PATIENT
  Age: 76 Year
  Sex: Male

DRUGS (7)
  1. XELODA [Suspect]
     Indication: PANCREATIC CARCINOMA
     Dosage: 1500 MG/M2/DAY DAYS 1-5 WK 2,4 PO
     Route: 048
     Dates: start: 20060428, end: 20060507
  2. GEMZAR [Suspect]
     Indication: PANCREATIC CARCINOMA
     Dosage: 600MG/M2 /  WK  2,4   IV DRIP
     Route: 041
     Dates: start: 20060428, end: 20060503
  3. TAXOTERE [Suspect]
     Indication: PANCREATIC CARCINOMA
     Dosage: 40 MG/M2   WK 1,3  IV DRIP
     Dates: start: 20060428, end: 20060503
  4. NOVOLOG [Concomitant]
  5. LANTIS [Concomitant]
  6. ASPIRIN [Concomitant]
  7. ENALAPRIL [Concomitant]

REACTIONS (1)
  - HOSPITALISATION [None]
